FAERS Safety Report 24064755 (Version 1)
Quarter: 2024Q3

REPORT INFORMATION
  Report Type: Spontaneous
  Country: BR (occurrence: BR)
  Receive Date: 20240709
  Receipt Date: 20240709
  Transmission Date: 20241017
  Serious: Yes (Other)
  Sender: PFIZER
  Company Number: BR-PFIZER INC-202400208757

PATIENT
  Age: 48 Year
  Sex: Female

DRUGS (1)
  1. DEPO-PROVERA [Suspect]
     Active Substance: MEDROXYPROGESTERONE ACETATE
     Dosage: UNK

REACTIONS (4)
  - Gliosis [Unknown]
  - Cerebrovascular accident [Unknown]
  - Bradykinesia [Unknown]
  - Memory impairment [Unknown]

NARRATIVE: CASE EVENT DATE: 20130101
